FAERS Safety Report 19408412 (Version 3)
Quarter: 2021Q3

REPORT INFORMATION
  Report Type: Report from Study
  Country: AT (occurrence: AT)
  Receive Date: 20210612
  Receipt Date: 20210722
  Transmission Date: 20211014
  Serious: Yes (Other)
  Sender: FDA-Public Use
  Company Number: NVSC2021AT129825

PATIENT
  Age: 53 Year
  Sex: Female

DRUGS (4)
  1. SIPONIMOD [Suspect]
     Active Substance: SIPONIMOD
     Dosage: UNK
     Route: 048
  2. FINGOLIMOD. [Suspect]
     Active Substance: FINGOLIMOD
     Dosage: UNK
     Route: 065
     Dates: start: 201303
  3. FINGOLIMOD. [Suspect]
     Active Substance: FINGOLIMOD
     Indication: RELAPSING-REMITTING MULTIPLE SCLEROSIS
     Dosage: 0.5 MG, QD
     Route: 048
     Dates: end: 202008
  4. SIPONIMOD [Suspect]
     Active Substance: SIPONIMOD
     Indication: SECONDARY PROGRESSIVE MULTIPLE SCLEROSIS
     Dosage: UNK
     Route: 048
     Dates: start: 202011

REACTIONS (5)
  - Gait disturbance [Unknown]
  - Muscular weakness [Unknown]
  - Expanded disability status scale [Recovering/Resolving]
  - Lymphopenia [Unknown]
  - Movement disorder [Unknown]

NARRATIVE: CASE EVENT DATE: 2014
